FAERS Safety Report 5921530-7 (Version None)
Quarter: 2008Q3

REPORT INFORMATION
  Report Type: 
  Country: None (occurrence: None)
  Receive Date: 20080929
  Receipt Date: 20080915
  Transmission Date: 20090109
  Serious: Yes (Hospitalization)
  Sender: FDA-Public Use
  Company Number: WSDF_00754

PATIENT
  Age: 4 Month
  Sex: Male
  Weight: 7 kg

DRUGS (1)
  1. WINRHO SDF [Suspect]
     Indication: IDIOPATHIC THROMBOCYTOPENIC PURPURA
     Dosage: 50 UG/KG ONCE IV
     Route: 042
     Dates: start: 20080912, end: 20080912

REACTIONS (2)
  - HAEMOLYTIC ANAEMIA [None]
  - INTRAVASCULAR HAEMOLYSIS [None]
